FAERS Safety Report 5788686-0 (Version None)
Quarter: 2008Q2

REPORT INFORMATION
  Report Type: 
  Country: None (occurrence: None)
  Receive Date: 20080626
  Receipt Date: 20080617
  Transmission Date: 20081010
  Serious: Yes (Hospitalization, Other)
  Sender: FDA-Public Use
  Company Number: US-AMGEN-QUU259252

PATIENT
  Sex: Male
  Weight: 80.8 kg

DRUGS (8)
  1. ENBREL [Suspect]
     Indication: ANKYLOSING SPONDYLITIS
     Route: 058
     Dates: start: 20071227, end: 20080103
  2. QUINAPRIL HCL [Concomitant]
  3. VICODIN [Concomitant]
  4. NORVASC [Concomitant]
  5. CARVEDILOL [Concomitant]
  6. NAPROXEN [Concomitant]
  7. PRAVACHOL [Concomitant]
  8. DYAZIDE [Concomitant]

REACTIONS (28)
  - ABDOMINAL ABSCESS [None]
  - ABDOMINAL PAIN [None]
  - ABDOMINAL WALL ABSCESS [None]
  - ANAEMIA POSTOPERATIVE [None]
  - ANKYLOSING SPONDYLITIS [None]
  - ARTHRALGIA [None]
  - COLONIC FISTULA [None]
  - DIVERTICULAR PERFORATION [None]
  - DYSPNOEA [None]
  - ESCHERICHIA INFECTION [None]
  - HEPATIC LESION [None]
  - HYPERTENSION [None]
  - HYPOKALAEMIA [None]
  - INTESTINAL PERFORATION [None]
  - JOINT SWELLING [None]
  - METABOLIC ACIDOSIS [None]
  - PELVIC FLUID COLLECTION [None]
  - PERITONITIS [None]
  - PLEURAL EFFUSION [None]
  - PNEUMONIA [None]
  - PNEUMONITIS [None]
  - POST PROCEDURAL HAEMATOMA [None]
  - POSTOPERATIVE WOUND INFECTION [None]
  - PROCEDURAL HYPOTENSION [None]
  - RENAL CYST [None]
  - SEPSIS [None]
  - SYNOVITIS [None]
  - TACHYCARDIA [None]
